FAERS Safety Report 5328998-8 (Version None)
Quarter: 2007Q2

REPORT INFORMATION
  Report Type: 
  Country: None (occurrence: None)
  Receive Date: 20070518
  Receipt Date: 20070509
  Transmission Date: 20071010
  Serious: Yes (Other)
  Sender: FDA-Public Use
  Company Number: US-PFIZER INC-2007038218

PATIENT
  Sex: Female
  Weight: 73.636 kg

DRUGS (4)
  1. CHANTIX [Suspect]
     Indication: SMOKING CESSATION THERAPY
     Dates: start: 20070426, end: 20070505
  2. CYMBALTA [Interacting]
     Indication: PAIN
     Dosage: DAILY DOSE:60MG
  3. CYMBALTA [Interacting]
     Indication: DEPRESSION
  4. ANALGESICS [Concomitant]

REACTIONS (7)
  - ANXIETY [None]
  - DEPRESSION [None]
  - DEPRESSION SUICIDAL [None]
  - DISEASE RECURRENCE [None]
  - DRUG INTERACTION [None]
  - FATIGUE [None]
  - PAIN [None]
